FAERS Safety Report 5491690-3 (Version None)
Quarter: 2007Q4

REPORT INFORMATION
  Report Type: 
  Country: None (occurrence: None)
  Receive Date: 20071018
  Receipt Date: 20071018
  Transmission Date: 20080405
  Serious: No
  Sender: FDA-Public Use
  Company Number: None

PATIENT
  Age: 40 Year
  Sex: Female

DRUGS (1)
  1. ENBREL [Suspect]
     Indication: PSORIASIS
     Dosage: 50 MG SQ TOOK 7 TIMES
     Route: 058
     Dates: start: 20051114, end: 20060625

REACTIONS (3)
  - PRURITUS [None]
  - SKIN HYPERTROPHY [None]
  - URTICARIA [None]
